FAERS Safety Report 16036178 (Version 1)
Quarter: 2019Q1

REPORT INFORMATION
  Report Type: Spontaneous
  Country: US (occurrence: US)
  Receive Date: 20190305
  Receipt Date: 20190305
  Transmission Date: 20190418
  Serious: No
  Sender: FDA-Public Use
  Company Number: US-ALLERGAN-1815296US

PATIENT
  Age: 6 Decade
  Sex: Female
  Weight: 58.96 kg

DRUGS (1)
  1. ESTRACE [Suspect]
     Active Substance: ESTRADIOL
     Indication: VULVOVAGINAL DISCOMFORT
     Dosage: 6.5 MG, QHS
     Route: 067
     Dates: start: 20180216

REACTIONS (2)
  - Headache [Not Recovered/Not Resolved]
  - Off label use [Unknown]
